FAERS Safety Report 21730231 (Version 1)
Quarter: 2022Q4

REPORT INFORMATION
  Report Type: Spontaneous
  Country: IT (occurrence: IT)
  Receive Date: 20221214
  Receipt Date: 20221214
  Transmission Date: 20230113
  Serious: Yes (Other)
  Sender: FDA-Public Use
  Company Number: None

PATIENT
  Age: 57 Year
  Sex: Male
  Weight: 100 kg

DRUGS (9)
  1. DARZALEX [Suspect]
     Active Substance: DARATUMUMAB
     Indication: Plasma cell myeloma refractory
     Dosage: 1800MG/5ML SOTTOCUTE
     Route: 058
     Dates: start: 20221129, end: 20221129
  2. BRUFECOD [Concomitant]
     Indication: Back pain
     Dosage: 400MG TABLETS.1 TABLET EVERY 12 HOURS
     Route: 048
     Dates: start: 20221001, end: 20221130
  3. BISOPROLOL FUMARATE [Concomitant]
     Active Substance: BISOPROLOL FUMARATE
     Indication: Hypertension
     Dosage: 2.5MG TABLETS.1 TABLET EVERY 24 HOURS
     Route: 048
     Dates: start: 20201101, end: 20221130
  4. CLODRON [Concomitant]
     Indication: Osteoporosis
     Dosage: 200MG/4ML AMPOULES.1 AMPOULE INTRAMUARE EVERY 7 DAYS
     Route: 030
     Dates: start: 20221001, end: 20221130
  5. XARELTO [Concomitant]
     Active Substance: RIVAROXABAN
     Indication: Anticoagulant therapy
     Dosage: 15MG TABLETS.1 TABLET EVERY 24 HOURS
     Route: 048
     Dates: start: 20201101, end: 20221130
  6. OLMESARTAN MEDOXOMIL [Concomitant]
     Active Substance: OLMESARTAN MEDOXOMIL
     Indication: Hypertension
     Dosage: 10 MG TABLETS.1 TABLET EVERY 24 HOURS
     Route: 048
     Dates: start: 20201101, end: 20221130
  7. METFORMIN HYDROCHLORIDE [Concomitant]
     Active Substance: METFORMIN HYDROCHLORIDE
     Indication: Type 2 diabetes mellitus
     Dosage: 500MG TABLETS.1 TABLET EVERY 24 HOURS
     Route: 048
     Dates: start: 20210201, end: 20221130
  8. OZEMPIC [Concomitant]
     Active Substance: SEMAGLUTIDE
     Indication: Diabetes mellitus
     Dosage: 8MG/3ML SUBCUTANEOUS SYRINGE1 ADMINISTRATION EVERY 7 DAYS
     Route: 058
     Dates: start: 20210201, end: 20221130
  9. FLECAINIDE ACETATE [Concomitant]
     Active Substance: FLECAINIDE ACETATE
     Indication: Hypertension
     Dosage: 100MG TABLETS.1 TABLET EVERY 24 HOURS
     Route: 048
     Dates: start: 20201101, end: 20221130

REACTIONS (5)
  - Vision blurred [Recovered/Resolved]
  - Abdominal pain [Recovered/Resolved]
  - Rash macular [Recovering/Resolving]
  - Back pain [Recovered/Resolved]
  - Feeling cold [Recovered/Resolved]

NARRATIVE: CASE EVENT DATE: 20221129
